FAERS Safety Report 7509069-9 (Version None)
Quarter: 2011Q2

REPORT INFORMATION
  Report Type: 
  Country: None (occurrence: None)
  Receive Date: 20110519
  Receipt Date: 20110512
  Transmission Date: 20111010
  Serious: Yes (Death, Hospitalization)
  Sender: FDA-Public Use
  Company Number: 2011SP021824

PATIENT
  Age: 22 Year
  Sex: Female

DRUGS (3)
  1. REMERON-S (MIRTAZAPINE /01293201/) [Suspect]
     Indication: DEPRESSION
     Dosage: 15 MG PO
     Route: 048
     Dates: start: 20100311
  2. ESCITALOPRAM [Suspect]
     Indication: ANXIETY
     Dosage: 5 MG PO
     Route: 048
     Dates: start: 20100311
  3. ESCITALOPRAM [Suspect]
     Indication: DEPRESSION
     Dosage: 5 MG PO
     Route: 048
     Dates: start: 20100311

REACTIONS (6)
  - HYPOPHAGIA [None]
  - PERICARDITIS [None]
  - DEHYDRATION [None]
  - CARDIAC ARREST [None]
  - FLUID INTAKE REDUCED [None]
  - HYPONATRAEMIA [None]
